FAERS Safety Report 6594661-9 (Version None)
Quarter: 2010Q1

REPORT INFORMATION
  Report Type: 
  Country: None (occurrence: None)
  Receive Date: 20100222
  Receipt Date: 20100212
  Transmission Date: 20100710
  Serious: Yes (Hospitalization, Disabling, Other)
  Sender: FDA-Public Use
  Company Number: JP-PFIZER INC-2010015375

PATIENT
  Age: 33 Year
  Sex: Female
  Weight: 46 kg

DRUGS (3)
  1. CHAMPIX [Suspect]
     Indication: SMOKING CESSATION THERAPY
     Dosage: 0.5 MG/DAY
     Route: 048
     Dates: start: 20091214, end: 20091216
  2. CHAMPIX [Suspect]
     Dosage: 1MG/DAY
     Dates: start: 20091217, end: 20091220
  3. CHAMPIX [Suspect]
     Dosage: 2MG/DAY
     Dates: start: 20091221

REACTIONS (2)
  - NAUSEA [None]
  - SUDDEN HEARING LOSS [None]
